FAERS Safety Report 14871644 (Version 3)
Quarter: 2018Q2

REPORT INFORMATION
  Report Type: Spontaneous
  Country: TW (occurrence: TW)
  Receive Date: 20180509
  Receipt Date: 20180611
  Transmission Date: 20180711
  Serious: Yes (Hospitalization)
  Sender: FDA-Public Use
  Company Number: TW-BAUSCH-BL-2018-012788

PATIENT
  Age: 28 Year
  Sex: Female

DRUGS (6)
  1. MEFENAMIC ACID. [Suspect]
     Active Substance: MEFENAMIC ACID
     Indication: MIGRAINE
     Dosage: TWICE OR THRICE PER DAY
     Route: 065
     Dates: end: 201701
  2. MEFENAMIC ACID. [Suspect]
     Active Substance: MEFENAMIC ACID
     Indication: EPIGASTRIC DISCOMFORT
  3. DICLOFENAC [Suspect]
     Active Substance: DICLOFENAC
     Indication: MIGRAINE
     Dosage: TWICE OR THRICE PER DAY
     Route: 065
     Dates: end: 201701
  4. DICLOFENAC [Suspect]
     Active Substance: DICLOFENAC
     Indication: EPIGASTRIC DISCOMFORT
  5. KETOROLAC [Suspect]
     Active Substance: KETOROLAC\KETOROLAC TROMETHAMINE
     Indication: EPIGASTRIC DISCOMFORT
  6. KETOROLAC [Suspect]
     Active Substance: KETOROLAC\KETOROLAC TROMETHAMINE
     Indication: MIGRAINE
     Route: 042
     Dates: start: 20161227, end: 201701

REACTIONS (2)
  - Tubulointerstitial nephritis [Recovered/Resolved]
  - Urinoma [Recovered/Resolved]

NARRATIVE: CASE EVENT DATE: 201612
